FAERS Safety Report 18113500 (Version 2)
Quarter: 2020Q3

REPORT INFORMATION
  Report Type: Spontaneous
  Country: US (occurrence: US)
  Receive Date: 20200805
  Receipt Date: 20200820
  Transmission Date: 20201103
  Serious: Yes (Other)
  Sender: FDA-Public Use
  Company Number: US-UNITED THERAPEUTICS-UNT-2020-011597

PATIENT
  Sex: Female

DRUGS (2)
  1. REMODULIN [Suspect]
     Active Substance: TREPROSTINIL
     Indication: PULMONARY ARTERIAL HYPERTENSION
     Dosage: UNK UNK, CONTINUING
     Route: 058
     Dates: start: 20140814
  2. REMODULIN [Suspect]
     Active Substance: TREPROSTINIL
     Dosage: 0.08175 ?G/KG, CONTINUING
     Route: 058

REACTIONS (6)
  - Sinus congestion [Unknown]
  - Pyrexia [Recovered/Resolved]
  - Infusion site pain [Unknown]
  - Oropharyngeal pain [Unknown]
  - Suspected COVID-19 [Unknown]
  - Ageusia [Unknown]
